FAERS Safety Report 13662817 (Version 1)
Quarter: 2017Q2

REPORT INFORMATION
  Report Type: Spontaneous
  Country: US (occurrence: US)
  Receive Date: 20170615
  Receipt Date: 20170615
  Transmission Date: 20170830
  Serious: No
  Sender: FDA-Public Use
  Company Number: None

PATIENT
  Age: 57 Year
  Sex: Female
  Weight: 56.25 kg

DRUGS (7)
  1. COLON DETOX [Concomitant]
  2. PROPRANOLOL [Concomitant]
     Active Substance: PROPRANOLOL HYDROCHLORIDE
  3. XANAX [Concomitant]
     Active Substance: ALPRAZOLAM
  4. FIBER PILLS [Concomitant]
  5. ATTENOLOL [Concomitant]
  6. DILTIAZEM. [Concomitant]
     Active Substance: DILTIAZEM
  7. ZINC OXIDE POWDER USP NON NANO 1 [Suspect]
     Active Substance: ZINC OXIDE
     Indication: PROPHYLAXIS AGAINST SOLAR RADIATION

REACTIONS (3)
  - Skin toxicity [None]
  - Nausea [None]
  - Unevaluable event [None]

NARRATIVE: CASE EVENT DATE: 20170614
